FAERS Safety Report 17536766 (Version 1)
Quarter: 2020Q1

REPORT INFORMATION
  Report Type: Spontaneous
  Country: CA (occurrence: CA)
  Receive Date: 20200313
  Receipt Date: 20200313
  Transmission Date: 20200409
  Serious: Yes (Other)
  Sender: FDA-Public Use
  Company Number: CA-ROCHE-2566908

PATIENT
  Age: 43 Year
  Sex: Male

DRUGS (5)
  1. AZATHIOPRINE. [Suspect]
     Active Substance: AZATHIOPRINE
     Indication: NECROTISING MYOSITIS
     Route: 065
  2. METHOTREXATE. [Suspect]
     Active Substance: METHOTREXATE
     Indication: NECROTISING MYOSITIS
     Route: 065
  3. RITUXIMAB. [Suspect]
     Active Substance: RITUXIMAB
     Indication: NECROTISING MYOSITIS
     Route: 065
  4. MYCOPHENOLATE MOFETIL. [Suspect]
     Active Substance: MYCOPHENOLATE MOFETIL
     Indication: NECROTISING MYOSITIS
     Route: 065
  5. ENBREL [Suspect]
     Active Substance: ETANERCEPT
     Indication: NECROTISING MYOSITIS
     Route: 065

REACTIONS (1)
  - Treatment failure [Unknown]
